FAERS Safety Report 8885927 (Version 1)
Quarter: 2012Q4

REPORT INFORMATION
  Report Type: 
  Country: US (occurrence: US)
  Receive Date: 20121105
  Receipt Date: 20121105
  Transmission Date: 20130627
  Serious: No
  Sender: FDA-Public Use
  Company Number: US-PFIZER INC-2012274926

PATIENT
  Age: 31 Year
  Sex: Male
  Weight: 76.19 kg

DRUGS (2)
  1. CHANTIX [Suspect]
     Indication: SMOKING CESSATION THERAPY
     Dosage: 1 mg, 2x/day
     Dates: start: 201210, end: 2012
  2. CHANTIX [Suspect]
     Dosage: UNK
     Dates: start: 2012

REACTIONS (1)
  - Tremor [Not Recovered/Not Resolved]
